FAERS Safety Report 7308699-7 (Version None)
Quarter: 2011Q1

REPORT INFORMATION
  Report Type: 
  Country: None (occurrence: None)
  Receive Date: 20110223
  Receipt Date: 20110211
  Transmission Date: 20110831
  Serious: Yes (Hospitalization)
  Sender: FDA-Public Use
  Company Number: PHFR2010GB05650

PATIENT
  Sex: Female

DRUGS (1)
  1. CLOZARIL [Suspect]
     Indication: SCHIZOPHRENIA
     Dosage: UNK
     Route: 048
     Dates: start: 20090807

REACTIONS (4)
  - BLADDER PAIN [None]
  - MENTAL IMPAIRMENT [None]
  - DRUG INEFFECTIVE [None]
  - GALLBLADDER PAIN [None]
